FAERS Safety Report 11575291 (Version 1)
Quarter: 2015Q3

REPORT INFORMATION
  Report Type: Spontaneous
  Country: US (occurrence: None)
  Receive Date: 20150929
  Receipt Date: 20150929
  Transmission Date: 20151125
  Serious: Yes (Other)
  Sender: FDA-Public Use
  Company Number: None

PATIENT
  Age: 68 Year
  Sex: Female
  Weight: 70.31 kg

DRUGS (1)
  1. DICLOFENAC 75 MG [Suspect]
     Active Substance: DICLOFENAC
     Dosage: 1 QD ORAL
     Route: 048

REACTIONS (6)
  - Memory impairment [None]
  - Headache [None]
  - Hyporeflexia [None]
  - Confusional state [None]
  - Cognitive disorder [None]
  - Pupil fixed [None]

NARRATIVE: CASE EVENT DATE: 20150826
